FAERS Safety Report 15530244 (Version 1)
Quarter: 2018Q4

REPORT INFORMATION
  Report Type: Spontaneous
  Country: HU (occurrence: HU)
  Receive Date: 20181018
  Receipt Date: 20181018
  Transmission Date: 20190205
  Serious: Yes (Other)
  Sender: FDA-Public Use
  Company Number: HU-BAYER-2018-190441

PATIENT
  Age: 52 Year
  Sex: Female

DRUGS (1)
  1. ULTRAVIST [Suspect]
     Active Substance: IOPROMIDE
     Dosage: 40 ML, ONCE
     Route: 042

REACTIONS (4)
  - Hemianaesthesia [Recovered/Resolved]
  - Eye pruritus [None]
  - Erythema [None]
  - Throat irritation [None]

NARRATIVE: CASE EVENT DATE: 20181010
